FAERS Safety Report 25988584 (Version 1)
Quarter: 2025Q4

REPORT INFORMATION
  Report Type: Spontaneous
  Country: US (occurrence: US)
  Receive Date: 20251103
  Receipt Date: 20251103
  Transmission Date: 20260118
  Serious: No
  Sender: RIGEL PHARMACEUTICALS
  Company Number: US-BLUEPRINT MEDICINES CORPORATION-2024BUS004510

PATIENT
  Sex: Male

DRUGS (1)
  1. GAVRETO [Suspect]
     Active Substance: PRALSETINIB
     Indication: Lung carcinoma cell type unspecified stage 0
     Dosage: 400 MILLIGRAM, QD
     Route: 048
     Dates: start: 202408, end: 2024

REACTIONS (2)
  - Abdominal discomfort [Unknown]
  - Constipation [Recovered/Resolved]

NARRATIVE: CASE EVENT DATE: 20240101
